FAERS Safety Report 8048042-1 (Version None)
Quarter: 2012Q1

REPORT INFORMATION
  Report Type: 
  Country: None (occurrence: None)
  Receive Date: 20120117
  Receipt Date: 20120111
  Transmission Date: 20120608
  Serious: Yes (Hospitalization)
  Sender: FDA-Public Use
  Company Number: FR-BIOGENIDEC-2011BI043641

PATIENT
  Age: 42 Year
  Sex: Male

DRUGS (3)
  1. AVONEX [Suspect]
     Route: 030
     Dates: start: 20031001
  2. AVONEX [Suspect]
     Indication: MULTIPLE SCLEROSIS
     Route: 030
     Dates: start: 20010101, end: 20031001
  3. ANTALGIC [Concomitant]
     Indication: INFLUENZA LIKE ILLNESS

REACTIONS (7)
  - VOMITING [None]
  - PAIN [None]
  - CHILLS [None]
  - INJECTION SITE INDURATION [None]
  - ERYSIPELAS [None]
  - ABSCESS [None]
  - INJECTION SITE ERYTHEMA [None]
